FAERS Safety Report 9383144 (Version 1)
Quarter: 2013Q3

REPORT INFORMATION
  Report Type: Spontaneous
  Country: US (occurrence: US)
  Receive Date: 20130704
  Receipt Date: 20130704
  Transmission Date: 20140515
  Serious: No
  Sender: FDA-Public Use
  Company Number: US-009507513-1307USA000066

PATIENT
  Sex: Female

DRUGS (2)
  1. JANUMET XR [Suspect]
     Dosage: UNK, BID
     Route: 048
  2. JANUMET XR [Suspect]
     Dosage: UNK, QD
     Route: 048

REACTIONS (2)
  - Inappropriate schedule of drug administration [Unknown]
  - No adverse event [Unknown]
